APPROVED DRUG PRODUCT: ETOPOSIDE
Active Ingredient: ETOPOSIDE
Strength: 20MG/ML
Dosage Form/Route: INJECTABLE;INJECTION
Application: A074510 | Product #001
Applicant: TEVA PARENTERAL MEDICINES INC
Approved: Jun 29, 1995 | RLD: No | RS: No | Type: DISCN